FAERS Safety Report 5199033-X (Version None)
Quarter: 2006Q4

REPORT INFORMATION
  Report Type: 
  Country: None (occurrence: None)
  Receive Date: 20061016
  Receipt Date: 20060615
  Transmission Date: 20070319
  Serious: No
  Sender: FDA-Public Use
  Company Number: 2006SP002450

PATIENT
  Age: 58 Year
  Sex: Male

DRUGS (3)
  1. LUNESTA [Suspect]
     Dosage: 2 MG; HS; ORAL
     Route: 048
  2. ZOLOFT [Concomitant]
  3. KLONOPIN [Concomitant]

REACTIONS (2)
  - NIGHT SWEATS [None]
  - PYREXIA [None]
